FAERS Safety Report 6400752-5 (Version None)
Quarter: 2009Q3

REPORT INFORMATION
  Report Type: 
  Country: None (occurrence: None)
  Receive Date: 20090929
  Receipt Date: 20090916
  Transmission Date: 20100115
  Serious: Yes (Hospitalization)
  Sender: FDA-Public Use
  Company Number: GXBR2009US01870

PATIENT
  Age: 73 Year
  Sex: Male
  Weight: 81.6 kg

DRUGS (3)
  1. ISOXSUPRINE HCL [Suspect]
     Indication: TINNITUS
     Dosage: 10 MG, TID, ORAL
     Route: 048
     Dates: end: 20090801
  2. LORAZEPAM [Concomitant]
  3. OXAZEPAM [Concomitant]

REACTIONS (4)
  - ARRHYTHMIA [None]
  - CHEST DISCOMFORT [None]
  - HEART RATE INCREASED [None]
  - MUSCULOSKELETAL DISCOMFORT [None]
